FAERS Safety Report 23076307 (Version 6)
Quarter: 2023Q4

REPORT INFORMATION
  Report Type: Report from Study
  Country: DE (occurrence: DE)
  Receive Date: 20231017
  Receipt Date: 20231101
  Transmission Date: 20240110
  Serious: Yes (Hospitalization)
  Sender: FDA-Public Use
  Company Number: DE-PFIZER INC-PV202300166070

PATIENT
  Age: 69 Year
  Sex: Male
  Weight: 75.5 kg

DRUGS (6)
  1. ENCORAFENIB [Suspect]
     Active Substance: ENCORAFENIB
     Indication: Malignant melanoma
     Dosage: 1X/DAY (QD)
     Route: 048
     Dates: start: 20230621, end: 20230920
  2. BINIMETINIB [Suspect]
     Active Substance: BINIMETINIB
     Indication: Malignant melanoma
     Dosage: 2X/DAY (BID)
     Route: 048
     Dates: start: 20230621, end: 20230920
  3. PEMBROLIZUMAB [Suspect]
     Active Substance: PEMBROLIZUMAB
     Indication: Malignant melanoma
     Dosage: 200 MG, EVERY 3 WEEKS (21 DAYS)
     Route: 042
     Dates: start: 20230912, end: 20230912
  4. ELIQUIS [Concomitant]
     Active Substance: APIXABAN
     Indication: Prophylaxis
     Dosage: 10 MG, 1X/DAY
     Route: 048
     Dates: start: 20010101
  5. ONDANSETRON [Concomitant]
     Active Substance: ONDANSETRON
     Indication: Nausea
     Dosage: 8 MG, 1X/DAY
     Route: 048
     Dates: start: 20230621
  6. CALCIUM [Concomitant]
     Active Substance: CALCIUM
     Indication: Hypocalcaemia
     Dosage: 750 MG, 1X/DAY
     Route: 048
     Dates: start: 20230823

REACTIONS (1)
  - Immune-mediated enterocolitis [Recovered/Resolved]

NARRATIVE: CASE EVENT DATE: 20231005
